FAERS Safety Report 9068331 (Version 2)
Quarter: 2013Q1

REPORT INFORMATION
  Report Type: Spontaneous
  Country: JP (occurrence: JP)
  Receive Date: 20130128
  Receipt Date: 20130207
  Transmission Date: 20140127
  Serious: Yes (Hospitalization)
  Sender: FDA-Public Use
  Company Number: JP-PFIZER INC-2013032451

PATIENT
  Age: 76 Year
  Sex: Female

DRUGS (7)
  1. LYRICA [Suspect]
     Dosage: UNK
     Dates: start: 20121129, end: 20121219
  2. LORCAM [Suspect]
     Dosage: 3 TIMES DAILY
  3. TRAMCET [Suspect]
     Dosage: BEFORE BEDTIME
  4. SOLON [Concomitant]
  5. RINLAXER [Concomitant]
  6. NAUZELIN [Concomitant]
  7. NEUROTROPIN [Concomitant]
     Dosage: TWICE DAILY

REACTIONS (2)
  - Melaena [Unknown]
  - Abdominal pain upper [Unknown]
